FAERS Safety Report 22126026 (Version 1)
Quarter: 2023Q1

REPORT INFORMATION
  Report Type: Spontaneous
  Country: US (occurrence: US)
  Receive Date: 20230322
  Receipt Date: 20230322
  Transmission Date: 20230418
  Serious: No
  Sender: FDA-Public Use
  Company Number: US-ALLERGAN-2212838US

PATIENT
  Age: 63 Year
  Sex: Female

DRUGS (1)
  1. LATISSE [Suspect]
     Active Substance: BIMATOPROST
     Indication: Growth of eyelashes
     Dosage: UNK, QHS

REACTIONS (8)
  - Visual impairment [Not Recovered/Not Resolved]
  - Swelling face [Not Recovered/Not Resolved]
  - Malaise [Not Recovered/Not Resolved]
  - Product administered at inappropriate site [Unknown]
  - Incorrect dose administered [Unknown]
  - Hordeolum [Not Recovered/Not Resolved]
  - Eye swelling [Not Recovered/Not Resolved]
  - Suspected product contamination [Unknown]

NARRATIVE: CASE EVENT DATE: 20220414
